FAERS Safety Report 19324960 (Version 1)
Quarter: 2021Q2

REPORT INFORMATION
  Report Type: Spontaneous
  Country: GB (occurrence: GB)
  Receive Date: 20210528
  Receipt Date: 20210528
  Transmission Date: 20210717
  Serious: Yes (Hospitalization, Other)
  Sender: FDA-Public Use
  Company Number: GB-ACCORD-225955

PATIENT
  Age: 57 Year
  Sex: Male
  Weight: 106 kg

DRUGS (17)
  1. TOCILIZUMAB. [Suspect]
     Active Substance: TOCILIZUMAB
     Indication: CORONAVIRUS INFECTION
     Dates: start: 20210121, end: 20210122
  2. AMIKACIN. [Concomitant]
     Active Substance: AMIKACIN
     Indication: PYREXIA
  3. FORMOTEROL FUMARATE DIHYDRATE/BECLOMETASONE DIPROPIONATE [Concomitant]
     Indication: ASTHMA
  4. SALBUTAMOL [Concomitant]
     Active Substance: ALBUTEROL
     Indication: ASTHMA
  5. AMIODARONE [Concomitant]
     Active Substance: AMIODARONE
     Indication: BRONCHOSPASM
  6. MEROPENEM. [Concomitant]
     Active Substance: MEROPENEM
  7. METOPROLOL. [Concomitant]
     Active Substance: METOPROLOL
  8. TIGECYCLINE. [Suspect]
     Active Substance: TIGECYCLINE
     Indication: PRODUCT USED FOR UNKNOWN INDICATION
  9. BISOPROLOL [Concomitant]
     Active Substance: BISOPROLOL
     Indication: ATRIAL FIBRILLATION
  10. CIPROFLOXACIN. [Concomitant]
     Active Substance: CIPROFLOXACIN
  11. COLISTIN [Concomitant]
     Active Substance: COLISTIN
  12. COLOMYCIN [Concomitant]
  13. PENTAMIDINE [Concomitant]
     Active Substance: PENTAMIDINE
  14. VANCOMYCIN [Concomitant]
     Active Substance: VANCOMYCIN
  15. LINEZOLID. [Suspect]
     Active Substance: LINEZOLID
     Indication: PRODUCT USED FOR UNKNOWN INDICATION
  16. FOSFOMYCIN [Concomitant]
     Active Substance: FOSFOMYCIN
  17. FLUTICASONE. [Concomitant]
     Active Substance: FLUTICASONE

REACTIONS (7)
  - Bronchospasm [Recovered/Resolved]
  - Sepsis [Recovered/Resolved]
  - Purpura non-thrombocytopenic [Recovered/Resolved]
  - Lip swelling [Recovered/Resolved]
  - Endocarditis [Recovered/Resolved]
  - Syncope [Recovered/Resolved]
  - Rash [Recovered/Resolved]

NARRATIVE: CASE EVENT DATE: 20210131
